FAERS Safety Report 12573182 (Version 1)
Quarter: 2016Q3

REPORT INFORMATION
  Report Type: Spontaneous
  Country: US (occurrence: None)
  Receive Date: 20160719
  Receipt Date: 20160719
  Transmission Date: 20161109
  Serious: No
  Sender: FDA-Public Use
  Company Number: None

PATIENT
  Age: 73 Year
  Sex: Female
  Weight: 62.6 kg

DRUGS (9)
  1. ALENDRONATE TAB 70 MG - FOSAMAX [Suspect]
     Active Substance: ALENDRONATE SODIUM
     Indication: OSTEOPOROSIS
     Route: 048
     Dates: start: 201601, end: 20160413
  2. FIBER [Concomitant]
     Active Substance: PSYLLIUM HUSK
  3. VITAMIN C [Concomitant]
     Active Substance: ASCORBIC ACID
  4. CELEBREX [Concomitant]
     Active Substance: CELECOXIB
  5. GLUCOSAMINE-CHONDROITIN COMPLEX [Concomitant]
  6. ASPIRIN. [Concomitant]
     Active Substance: ASPIRIN
  7. CALCIUM CARBONATE. [Concomitant]
     Active Substance: CALCIUM CARBONATE
  8. VITAMIN D3 [Concomitant]
     Active Substance: CHOLECALCIFEROL
  9. OSTEOMATRIX [Concomitant]

REACTIONS (1)
  - Urticaria [None]

NARRATIVE: CASE EVENT DATE: 20160422
